FAERS Safety Report 6075498-6 (Version None)
Quarter: 2009Q1

REPORT INFORMATION
  Report Type: 
  Country: None (occurrence: None)
  Receive Date: 20090212
  Receipt Date: 20090128
  Transmission Date: 20090719
  Serious: Yes (Hospitalization)
  Sender: FDA-Public Use
  Company Number: FR-GENENTECH-276926

PATIENT
  Sex: Male

DRUGS (6)
  1. BEVACIZUMAB [Suspect]
     Indication: COLORECTAL CANCER METASTATIC
     Dosage: 547 MG, QD
     Route: 042
     Dates: start: 20061107, end: 20070731
  2. BEVACIZUMAB [Suspect]
     Dosage: 480 MG, UNK
     Route: 042
  3. CAPECITABINE [Suspect]
     Indication: COLORECTAL CANCER METASTATIC
     Dosage: 3600 MG, D1-14/Q3W
     Route: 042
     Dates: start: 20061107
  4. CAPECITABINE [Suspect]
     Dosage: 48300 MG, UNK
     Route: 042
  5. IRINOTECAN HCL [Suspect]
     Indication: COLORECTAL CANCER METASTATIC
     Dosage: 450 MG, UNK
     Route: 042
     Dates: start: 20061107, end: 20070416
  6. IRINOTECAN HCL [Suspect]
     Dosage: 250 MG, UNK
     Route: 042

REACTIONS (1)
  - PERITONITIS [None]
